FAERS Safety Report 16332981 (Version 2)
Quarter: 2019Q3

REPORT INFORMATION
  Report Type: Spontaneous
  Country: FR (occurrence: FR)
  Receive Date: 20190520
  Receipt Date: 20190925
  Transmission Date: 20191004
  Serious: Yes (Hospitalization)
  Sender: FDA-Public Use
  Company Number: FR-MYLANLABS-2019M1047490

PATIENT
  Age: 17 Year
  Sex: Male
  Weight: 61 kg

DRUGS (6)
  1. CLOZAPINE. [Suspect]
     Active Substance: CLOZAPINE
     Indication: PSYCHOTIC DISORDER
     Dosage: UNK
     Route: 048
     Dates: start: 20190308
  2. CLOPIXOL                           /00876704/ [Suspect]
     Active Substance: ZUCLOPENTHIXOL ACETATE
     Indication: PSYCHOTIC DISORDER
     Dosage: 800 MILLIGRAM
     Route: 030
     Dates: start: 20190412
  3. LEPTICUR [Suspect]
     Active Substance: TROPATEPINE HYDROCHLORIDE
     Indication: PARKINSONISM
     Dosage: 3 DOSAGE FORM
     Route: 048
     Dates: start: 20190320
  4. LEPTICURE [Suspect]
     Active Substance: GABAPENTIN
     Indication: PARKINSONISM
     Dosage: 3 DOSAGE FORM
     Route: 048
  5. LYSANXIA [Suspect]
     Active Substance: PRAZEPAM
     Indication: PSYCHOTIC DISORDER
     Dosage: UNK
     Route: 048
     Dates: start: 20190320
  6. CLOPIXOL                           /00876703/ [Suspect]
     Active Substance: ZUCLOPENTHIXOL HYDROCHLORIDE
     Indication: PSYCHOTIC DISORDER
     Dosage: UNK
     Route: 048
     Dates: start: 20190214

REACTIONS (3)
  - Product use issue [Unknown]
  - Vision blurred [Not Recovered/Not Resolved]
  - Mydriasis [Not Recovered/Not Resolved]

NARRATIVE: CASE EVENT DATE: 20190403
